FAERS Safety Report 13844830 (Version 9)
Quarter: 2018Q2

REPORT INFORMATION
  Report Type: Spontaneous
  Country: US (occurrence: US)
  Receive Date: 20170808
  Receipt Date: 20180612
  Transmission Date: 20180711
  Serious: Yes (Congenital Anomaly, Other)
  Sender: FDA-Public Use
  Company Number: PHEH2017US024762

PATIENT
  Sex: Female

DRUGS (2)
  1. ZOFRAN ODT [Suspect]
     Active Substance: ONDANSETRON HYDROCHLORIDE
     Indication: FOETAL EXPOSURE DURING PREGNANCY
     Route: 064
  2. ZOFRAN [Suspect]
     Active Substance: ONDANSETRON HYDROCHLORIDE
     Indication: FOETAL EXPOSURE DURING PREGNANCY
     Dosage: MOTHER^S DOSE: 4 TO 8 MG
     Route: 064

REACTIONS (69)
  - Atrial septal defect [Unknown]
  - Patent ductus arteriosus [Unknown]
  - Cellulitis [Unknown]
  - Epiglottitis [Unknown]
  - Asthma [Unknown]
  - Nasopharyngitis [Unknown]
  - Splenomegaly [Unknown]
  - Headache [Unknown]
  - Vitamin D deficiency [Unknown]
  - Nasal septum deviation [Unknown]
  - Left-to-right cardiac shunt [Unknown]
  - Right atrial enlargement [Unknown]
  - Heart disease congenital [Unknown]
  - Ventricular septal defect [Unknown]
  - Respiratory distress [Unknown]
  - Diarrhoea [Recovered/Resolved]
  - Vomiting [Recovered/Resolved]
  - Upper limb fracture [Unknown]
  - Abdominal pain [Unknown]
  - Synovitis [Unknown]
  - Temporomandibular joint syndrome [Unknown]
  - Fall [Unknown]
  - Accident [Unknown]
  - Pain in extremity [Unknown]
  - Musculoskeletal pain [Unknown]
  - Chills [Unknown]
  - Immunodeficiency [Unknown]
  - Emotional distress [Unknown]
  - Cardiac murmur [Unknown]
  - Clavicle fracture [Unknown]
  - Viral infection [Unknown]
  - Hand-foot-and-mouth disease [Unknown]
  - Chronic sinusitis [Unknown]
  - Anxiety [Unknown]
  - Pollakiuria [Unknown]
  - Bronchitis [Unknown]
  - Tenosynovitis [Unknown]
  - Laryngitis [Unknown]
  - Influenza [Unknown]
  - Upper respiratory tract infection [Unknown]
  - Tricuspid valve incompetence [Unknown]
  - Adenoiditis [Unknown]
  - Foetal exposure during pregnancy [Unknown]
  - Injury [Unknown]
  - Deformity [Unknown]
  - Otitis media acute [Unknown]
  - Arthralgia [Unknown]
  - Dysphagia [Unknown]
  - Skin abrasion [Unknown]
  - Sinus pain [Unknown]
  - Nasal congestion [Unknown]
  - Contusion [Unknown]
  - Constipation [Unknown]
  - Myalgia [Unknown]
  - Urinary tract infection [Unknown]
  - Cough [Unknown]
  - Nasal turbinate hypertrophy [Unknown]
  - Pyrexia [Unknown]
  - Croup infectious [Unknown]
  - Pneumonia [Unknown]
  - Pain [Unknown]
  - Myositis [Unknown]
  - Face injury [Unknown]
  - Pulmonary valve stenosis [Unknown]
  - Osteitis [Unknown]
  - Sinusitis [Unknown]
  - Oropharyngeal pain [Unknown]
  - Torus fracture [Unknown]
  - Peripheral swelling [Unknown]
